FAERS Safety Report 7383426-6 (Version None)
Quarter: 2011Q1

REPORT INFORMATION
  Report Type: 
  Country: None (occurrence: None)
  Receive Date: 20110330
  Receipt Date: 20110318
  Transmission Date: 20110831
  Serious: Yes (Other)
  Sender: FDA-Public Use
  Company Number: RU-JNJFOC-20101002980

PATIENT
  Age: 58 Year
  Sex: Male

DRUGS (2)
  1. ZALDIAR [Suspect]
     Indication: PERIARTHRITIS
     Route: 048
  2. XEFOCAM [Concomitant]
     Indication: PERIARTHRITIS

REACTIONS (1)
  - UNRESPONSIVE TO STIMULI [None]
